FAERS Safety Report 17403352 (Version 1)
Quarter: 2020Q1

REPORT INFORMATION
  Report Type: Report from Study
  Country: CA (occurrence: CA)
  Receive Date: 20200211
  Receipt Date: 20200211
  Transmission Date: 20200409
  Serious: Yes (Hospitalization)
  Sender: FDA-Public Use
  Company Number: CA-PFIZER INC-2020055789

PATIENT
  Sex: Male

DRUGS (9)
  1. BEVACIZUMAB. [Suspect]
     Active Substance: BEVACIZUMAB
     Dosage: 500 MG, UNK [1 EVERY 2 MONTHS]
     Route: 042
  2. FUROSEMIDE. [Concomitant]
     Active Substance: FUROSEMIDE
     Dosage: UNK
     Route: 065
  3. BEVACIZUMAB. [Suspect]
     Active Substance: BEVACIZUMAB
     Dosage: 475 MG, EVERY 3 MONTHS
     Route: 042
  4. SPIRONOLACTONE. [Concomitant]
     Active Substance: SPIRONOLACTONE
     Dosage: UNK
     Route: 065
  5. MAGNESIUM [Concomitant]
     Active Substance: MAGNESIUM
     Dosage: UNK
     Route: 065
  6. SLOW K [Concomitant]
     Active Substance: POTASSIUM CHLORIDE
     Dosage: UNK
     Route: 065
  7. BEVACIZUMAB. [Suspect]
     Active Substance: BEVACIZUMAB
     Indication: HEREDITARY HAEMORRHAGIC TELANGIECTASIA
     Dosage: 475 MG, UNK [1 EVERY 2 WEEKS]
     Route: 042
  8. METOLAZONE. [Concomitant]
     Active Substance: METOLAZONE
     Dosage: UNK
     Route: 065
  9. METOPROLOL. [Concomitant]
     Active Substance: METOPROLOL
     Dosage: UNK
     Route: 065

REACTIONS (3)
  - Staphylococcal infection [Not Recovered/Not Resolved]
  - Off label use [Not Recovered/Not Resolved]
  - Decubitus ulcer [Not Recovered/Not Resolved]
